FAERS Safety Report 19649614 (Version 2)
Quarter: 2022Q2

REPORT INFORMATION
  Report Type: Spontaneous
  Country: US (occurrence: US)
  Receive Date: 20210802
  Receipt Date: 20220512
  Transmission Date: 20220721
  Serious: No
  Sender: FDA-Public Use
  Company Number: US-PFIZER INC-2021767358

PATIENT
  Age: 78 Year
  Sex: Male
  Weight: 99.79 kg

DRUGS (1)
  1. VYNDAQEL [Suspect]
     Active Substance: TAFAMIDIS MEGLUMINE
     Indication: Amyloidosis
     Dosage: 20 MG, 4X/DAY

REACTIONS (4)
  - Rash erythematous [Unknown]
  - Photosensitivity reaction [Unknown]
  - Off label use [Unknown]
  - Off label use [Unknown]
